FAERS Safety Report 9815988 (Version 1)
Quarter: 2014Q1

REPORT INFORMATION
  Report Type: Spontaneous
  Country: US (occurrence: US)
  Receive Date: 20140114
  Receipt Date: 20140114
  Transmission Date: 20141002
  Serious: Yes (Death)
  Sender: FDA-Public Use
  Company Number: US-PFIZER INC-2014006519

PATIENT
  Age: 48 Year
  Sex: Male

DRUGS (4)
  1. LIDOCAINE HCL [Suspect]
     Dosage: UNK
  2. HEROIN [Suspect]
     Dosage: UNK
  3. QUININE [Suspect]
     Dosage: UNK
  4. DOXYLAMINE [Suspect]
     Dosage: UNK

REACTIONS (1)
  - Drug abuse [Fatal]
